FAERS Safety Report 8103427-X (Version None)
Quarter: 2012Q1

REPORT INFORMATION
  Report Type: 
  Country: None (occurrence: None)
  Receive Date: 20120201
  Receipt Date: 20120119
  Transmission Date: 20120608
  Serious: Yes (Hospitalization)
  Sender: FDA-Public Use
  Company Number: PHEH2011US010545

PATIENT
  Age: 35 Year
  Sex: Female
  Weight: 47.166 kg

DRUGS (3)
  1. PULMOZYME [Concomitant]
  2. TOBI [Suspect]
     Dosage: 300 MG, BID 28 DAYS ON AND 28 DAYS OFF
     Dates: start: 20111011
  3. ENOXAPARIN [Concomitant]

REACTIONS (3)
  - OROPHARYNGEAL PAIN [None]
  - GASTROINTESTINAL DISORDER [None]
  - INFECTION [None]
